FAERS Safety Report 5331037-6 (Version None)
Quarter: 2007Q2

REPORT INFORMATION
  Report Type: 
  Country: None (occurrence: None)
  Receive Date: 20070522
  Receipt Date: 20070517
  Transmission Date: 20071010
  Serious: Yes (Hospitalization)
  Sender: FDA-Public Use
  Company Number: A0650820A

PATIENT
  Age: 34 Year
  Sex: Female

DRUGS (4)
  1. LAMICTAL [Suspect]
     Indication: EPILEPSY
     Dosage: 100MG TWICE PER DAY
     Route: 048
     Dates: end: 20070506
  2. KEPPRA [Concomitant]
  3. ADVIL [Concomitant]
  4. VITAMIN B-12 [Concomitant]

REACTIONS (8)
  - DISORIENTATION [None]
  - HEPATIC ENZYME INCREASED [None]
  - LIP SWELLING [None]
  - PLATELET COUNT DECREASED [None]
  - PYREXIA [None]
  - RASH [None]
  - TONGUE COATED [None]
  - WHITE BLOOD CELL COUNT DECREASED [None]
